FAERS Safety Report 21778624 (Version 1)
Quarter: 2022Q4

REPORT INFORMATION
  Report Type: Report from Study
  Country: US (occurrence: US)
  Receive Date: 20221226
  Receipt Date: 20221226
  Transmission Date: 20230112
  Serious: Yes (Hospitalization)
  Sender: FDA-Public Use
  Company Number: US-TAKEDA-2022TUS038641

PATIENT
  Sex: Male
  Weight: 59 kg

DRUGS (2)
  1. BRIGATINIB [Suspect]
     Active Substance: BRIGATINIB
     Indication: Lung neoplasm malignant
     Dosage: 180 MILLIGRAM, QD
     Route: 065
     Dates: start: 202203
  2. BRIGATINIB [Suspect]
     Active Substance: BRIGATINIB
     Dosage: 180 MILLIGRAM, QOD
     Route: 065
     Dates: start: 20220419

REACTIONS (6)
  - Fall [Unknown]
  - Arthralgia [Unknown]
  - Weight decreased [Unknown]
  - Illness [Unknown]
  - Inappropriate schedule of product administration [Unknown]
  - Product dose omission issue [Unknown]
